FAERS Safety Report 5865185-9 (Version None)
Quarter: 2008Q3

REPORT INFORMATION
  Report Type: 
  Country: None (occurrence: None)
  Receive Date: 20080829
  Receipt Date: 20080821
  Transmission Date: 20090109
  Serious: Yes (Hospitalization)
  Sender: FDA-Public Use
  Company Number: A0745255A

PATIENT
  Age: 36 Year
  Sex: Male
  Weight: 107.3 kg

DRUGS (1)
  1. AVANDAMET [Suspect]
     Dosage: 4MG TWICE PER DAY
     Dates: start: 20050101, end: 20080413

REACTIONS (1)
  - CEREBROVASCULAR ACCIDENT [None]
